FAERS Safety Report 9046944 (Version 1)
Quarter: 2013Q1

REPORT INFORMATION
  Report Type: Spontaneous
  Country: US (occurrence: None)
  Receive Date: 20130129
  Receipt Date: 20130129
  Transmission Date: 20140127
  Serious: Yes (Life-Threatening)
  Sender: FDA-Public Use
  Company Number: None

PATIENT
  Age: 62 Year
  Sex: Male
  Weight: 77.1 kg

DRUGS (1)
  1. IBUTILIDE [Suspect]
     Indication: ATRIAL FLUTTER
     Dosage: Q 10 MINUTES X 2
     Route: 042
     Dates: start: 20130121, end: 20130121

REACTIONS (2)
  - Ventricular tachycardia [None]
  - Cardiac arrest [None]
